FAERS Safety Report 19036172 (Version 1)
Quarter: 2021Q1

REPORT INFORMATION
  Report Type: Other
  Country: CN (occurrence: CN)
  Receive Date: 20210321
  Receipt Date: 20210321
  Transmission Date: 20210420
  Serious: Yes (Other)
  Sender: FDA-Public Use
  Company Number: CN-ROCHE-2787476

PATIENT

DRUGS (4)
  1. PEMETREXED DISODIUM [Suspect]
     Active Substance: PEMETREXED DISODIUM
     Indication: LUNG ADENOCARCINOMA
     Dosage: ON THE FIRST DAY ONLY, AND EVERY 21 DAYS WAS A CYCLE
     Route: 041
  2. BEVACIZUMAB. [Suspect]
     Active Substance: BEVACIZUMAB
     Indication: LUNG ADENOCARCINOMA
     Dosage: ONLY THE FIRST DAY OF ADMINISTRATION, EVERY 14 DAYS WAS A CYCLE
     Route: 041
  3. DEXAMETHASONE. [Concomitant]
     Active Substance: DEXAMETHASONE
     Indication: SYMPTOMATIC TREATMENT
     Dosage: ONE DAY BEFORE, ON THE SAME DAY AND ONE DAY AFTER THE ADMINISTRATION OF PEMETREXED
     Route: 048
  4. FOLIC ACID. [Concomitant]
     Active Substance: FOLIC ACID
     Indication: SYMPTOMATIC TREATMENT
     Route: 048

REACTIONS (8)
  - Neutrophil count decreased [Unknown]
  - Proteinuria [Unknown]
  - Fatigue [Unknown]
  - Nausea [Unknown]
  - Vomiting [Unknown]
  - Hypertension [Unknown]
  - Platelet count decreased [Unknown]
  - Anaemia [Unknown]
